FAERS Safety Report 19641991 (Version 1)
Quarter: 2021Q3

REPORT INFORMATION
  Report Type: Spontaneous
  Country: IN (occurrence: IN)
  Receive Date: 20210731
  Receipt Date: 20210731
  Transmission Date: 20211014
  Serious: Yes (Life-Threatening, Hospitalization, Other)
  Sender: FDA-Public Use
  Company Number: IN-CPL-002458

PATIENT
  Age: 69 Year
  Sex: Male

DRUGS (3)
  1. CLOPIDOGREL [Concomitant]
     Active Substance: CLOPIDOGREL BISULFATE
     Dosage: ONCE DAILY
  2. ROSUVASTATIN/ROSUVASTATIN CALCIUM [Suspect]
     Active Substance: ROSUVASTATIN CALCIUM
     Indication: PRODUCT USED FOR UNKNOWN INDICATION
     Dosage: ONCE DAILY
  3. ACETYLSALICYLIC ACID [Concomitant]
     Active Substance: ASPIRIN
     Dosage: ONCE DAILY

REACTIONS (6)
  - Rhabdomyolysis [Recovered/Resolved]
  - Acute kidney injury [Recovered/Resolved]
  - Hyperkalaemia [Recovering/Resolving]
  - Hepatic enzyme increased [Unknown]
  - Metabolic acidosis [Recovering/Resolving]
  - Myopathy [Recovered/Resolved]
